FAERS Safety Report 9507820 (Version 1)
Quarter: 2013Q3

REPORT INFORMATION
  Report Type: Spontaneous
  Country: US (occurrence: US)
  Receive Date: 20130909
  Receipt Date: 20130909
  Transmission Date: 20140515
  Serious: Yes (Other)
  Sender: FDA-Public Use
  Company Number: US-PFIZER INC-2013258541

PATIENT
  Age: 64 Year
  Sex: Female

DRUGS (3)
  1. EFFEXOR XR [Suspect]
     Indication: HOT FLUSH
     Dosage: 37.5 MG, 1X/DAY
     Route: 048
  2. HYDROCHLOROTHIAZIDE [Concomitant]
     Dosage: UNK
  3. SIMVASTATIN [Concomitant]
     Dosage: UNK

REACTIONS (2)
  - Hernia [Unknown]
  - Off label use [Unknown]
